FAERS Safety Report 23065055 (Version 1)
Quarter: 2023Q4

REPORT INFORMATION
  Report Type: Spontaneous
  Country: US (occurrence: None)
  Receive Date: 20231013
  Receipt Date: 20231013
  Transmission Date: 20240110
  Serious: Yes (Other)
  Sender: FDA-Public Use
  Company Number: None

PATIENT
  Age: 62 Year
  Sex: Female

DRUGS (2)
  1. DEVICE [Suspect]
     Active Substance: DEVICE
  2. TERIPARATIDE [Suspect]
     Active Substance: TERIPARATIDE

REACTIONS (7)
  - Depression [None]
  - Fatigue [None]
  - Headache [None]
  - Arthralgia [None]
  - Weight decreased [None]
  - Cystitis [None]
  - Apathy [None]

NARRATIVE: CASE EVENT DATE: 20230908
